FAERS Safety Report 8005515-5 (Version None)
Quarter: 2011Q4

REPORT INFORMATION
  Report Type: 
  Country: None (occurrence: None)
  Receive Date: 20111223
  Receipt Date: 20111214
  Transmission Date: 20120403
  Serious: Yes (Life-Threatening)
  Sender: FDA-Public Use
  Company Number: JP-JHP PHARMACEUTICALS, LLC-JHP201100369

PATIENT
  Sex: Male
  Weight: 77 kg

DRUGS (9)
  1. ADENOSINE [Concomitant]
     Dosage: UNK
     Route: 048
     Dates: start: 20040817
  2. ALENDRONATE SODIUM [Concomitant]
     Dosage: UNK
     Route: 048
     Dates: start: 20081224
  3. TIZANIDINE HCL [Concomitant]
     Dosage: UNK
     Route: 048
     Dates: start: 20070403
  4. METHYCOBAL [Concomitant]
     Dosage: UNK
     Route: 048
     Dates: start: 20070501
  5. VOLTAREN [Concomitant]
     Dosage: UNK
     Dates: start: 20070403
  6. DANTRIUM [Suspect]
     Indication: SPINAL LIGAMENT OSSIFICATION
     Dosage: 50 MG, TID
     Route: 048
     Dates: start: 20070403
  7. NEUROTROPIN [Concomitant]
     Dosage: UNK
     Route: 048
     Dates: start: 20100728
  8. OPALMON [Concomitant]
     Dosage: UNK
     Dates: start: 20070403
  9. LOXONIN [Concomitant]
     Dosage: UNK
     Dates: start: 20070501

REACTIONS (2)
  - CONDITION AGGRAVATED [None]
  - ALTERED STATE OF CONSCIOUSNESS [None]
